FAERS Safety Report 21393553 (Version 2)
Quarter: 2022Q4

REPORT INFORMATION
  Report Type: Spontaneous
  Country: US (occurrence: US)
  Receive Date: 20220929
  Receipt Date: 20221003
  Transmission Date: 20230112
  Serious: No
  Sender: FDA-Public Use
  Company Number: US-BAUSCHBL-2022BNL000711

PATIENT
  Age: 67 Year
  Sex: Female

DRUGS (1)
  1. GLYCERIN\PROPYLENE GLYCOL [Suspect]
     Active Substance: GLYCERIN\PROPYLENE GLYCOL
     Indication: Eye allergy
     Route: 047
     Dates: start: 202209, end: 20220926

REACTIONS (1)
  - Instillation site irritation [Unknown]

NARRATIVE: CASE EVENT DATE: 20220925
